FAERS Safety Report 12803944 (Version 2)
Quarter: 2016Q4

REPORT INFORMATION
  Report Type: Spontaneous
  Country: FR (occurrence: FR)
  Receive Date: 20161003
  Receipt Date: 20161107
  Transmission Date: 20170207
  Serious: Yes (Hospitalization, Other)
  Sender: FDA-Public Use
  Company Number: FR-BRISTOL-MYERS SQUIBB COMPANY-BMS-2016-080391

PATIENT
  Age: 74 Year
  Sex: Male

DRUGS (2)
  1. OPDIVO [Suspect]
     Active Substance: NIVOLUMAB
     Indication: LUNG NEOPLASM MALIGNANT
     Dosage: 3 MG/KG, QD PER CYCLE
     Route: 041
     Dates: start: 20160812
  2. OPDIVO [Suspect]
     Active Substance: NIVOLUMAB
     Indication: PRODUCT USED FOR UNKNOWN INDICATION
     Dosage: 3 MG/KG, QD PER CYCLE
     Route: 041
     Dates: start: 20161014

REACTIONS (5)
  - Oedema peripheral [Recovered/Resolved]
  - Pulmonary arterial hypertension [Unknown]
  - Left ventricular dysfunction [Recovering/Resolving]
  - Dyspnoea [Recovered/Resolved]
  - Congestive cardiomyopathy [Unknown]

NARRATIVE: CASE EVENT DATE: 201608
